FAERS Safety Report 5801499-6 (Version None)
Quarter: 2008Q3

REPORT INFORMATION
  Report Type: 
  Country: None (occurrence: None)
  Receive Date: 20080707
  Receipt Date: 20080627
  Transmission Date: 20090109
  Serious: Yes (Other)
  Sender: FDA-Public Use
  Company Number: US-ROCHE-573048

PATIENT

DRUGS (1)
  1. BONIVA [Suspect]
     Indication: DRUG USE FOR UNKNOWN INDICATION
     Route: 065

REACTIONS (10)
  - ARTHRALGIA [None]
  - BONE PAIN [None]
  - DYSPHAGIA [None]
  - GASTRIC ULCER [None]
  - HYPERSENSITIVITY [None]
  - JAW DISORDER [None]
  - MYALGIA [None]
  - NEOPLASM MALIGNANT [None]
  - ODYNOPHAGIA [None]
  - PAIN IN EXTREMITY [None]
